FAERS Safety Report 9494253 (Version 1)
Quarter: 2013Q3

REPORT INFORMATION
  Report Type: Spontaneous
  Country: US (occurrence: US)
  Receive Date: 20130903
  Receipt Date: 20130903
  Transmission Date: 20140515
  Serious: Yes (Hospitalization)
  Sender: FDA-Public Use
  Company Number: US-ROCHE-1268849

PATIENT
  Age: 13 Year
  Sex: Male

DRUGS (5)
  1. XOLAIR [Suspect]
     Indication: ASTHMA
     Route: 058
     Dates: start: 20120725
  2. ADVAIR [Concomitant]
  3. PREDNISONE [Concomitant]
  4. SINGULAIR [Concomitant]
  5. VENTOLIN [Concomitant]
     Dosage: 2 PUFFS EVERY 4 HOURS
     Route: 065

REACTIONS (4)
  - Asthma [Recovered/Resolved]
  - Obstructive airways disorder [Unknown]
  - Nasopharyngitis [Recovering/Resolving]
  - Injection site pain [Unknown]
